FAERS Safety Report 20734880 (Version 1)
Quarter: 2022Q2

REPORT INFORMATION
  Report Type: Spontaneous
  Country: TR (occurrence: TR)
  Receive Date: 20220421
  Receipt Date: 20220421
  Transmission Date: 20220721
  Serious: Yes (Hospitalization, Other)
  Sender: FDA-Public Use
  Company Number: TR-PRA-001195

PATIENT
  Age: 20 Year
  Sex: Female

DRUGS (16)
  1. METHYLPREDNISOLONE [Suspect]
     Active Substance: METHYLPREDNISOLONE
     Indication: Takayasu^s arteritis
     Route: 065
  2. ASPIRIN [Suspect]
     Active Substance: ASPIRIN
     Indication: Takayasu^s arteritis
     Route: 065
  3. PREDNISOLONE [Suspect]
     Active Substance: PREDNISOLONE
     Indication: Takayasu^s arteritis
     Route: 065
  4. NEBIVOLOL [Suspect]
     Active Substance: NEBIVOLOL
     Indication: Hypertension
     Route: 065
  5. AMLODIPINE BESYLATE [Suspect]
     Active Substance: AMLODIPINE BESYLATE
     Indication: Hypertension
     Route: 065
  6. DOXAZOSIN [Suspect]
     Active Substance: DOXAZOSIN MESYLATE
     Indication: Hypertension
     Route: 065
  7. TOCILIZUMAB [Suspect]
     Active Substance: TOCILIZUMAB
     Indication: Takayasu^s arteritis
     Route: 042
  8. CARVEDILOL [Suspect]
     Active Substance: CARVEDILOL
     Indication: Malignant hypertension
     Route: 065
  9. FUROSEMIDE [Suspect]
     Active Substance: FUROSEMIDE
     Indication: Malignant hypertension
     Route: 042
  10. ISOSORBIDE MONONITRATE [Suspect]
     Active Substance: ISOSORBIDE MONONITRATE
     Indication: Malignant hypertension
     Route: 065
  11. MOXONIDINE [Suspect]
     Active Substance: MOXONIDINE
     Indication: Malignant hypertension
     Route: 065
  12. METHYLPREDNISOLONE [Suspect]
     Active Substance: METHYLPREDNISOLONE
     Indication: Takayasu^s arteritis
     Route: 065
  13. METHYLPREDNISOLONE [Suspect]
     Active Substance: METHYLPREDNISOLONE
     Indication: Takayasu^s arteritis
     Route: 065
  14. TOCILIZUMAB [Suspect]
     Active Substance: TOCILIZUMAB
     Indication: Takayasu^s arteritis
     Route: 058
  15. NEBIVOLOL [Suspect]
     Active Substance: NEBIVOLOL
     Indication: Malignant hypertension
     Route: 065
  16. AMLODIPINE BESYLATE [Suspect]
     Active Substance: AMLODIPINE BESYLATE
     Indication: Malignant hypertension
     Route: 065

REACTIONS (5)
  - Thrombotic microangiopathy [Unknown]
  - Malignant hypertension [Unknown]
  - Thrombocytopenia [Recovered/Resolved]
  - Hypervolaemia [Recovered/Resolved]
  - Product use in unapproved indication [Unknown]
